FAERS Safety Report 6945257-8 (Version None)
Quarter: 2010Q3

REPORT INFORMATION
  Report Type: 
  Country: None (occurrence: None)
  Receive Date: 20100827
  Receipt Date: 20100721
  Transmission Date: 20110219
  Serious: No
  Sender: FDA-Public Use
  Company Number: US-KINGPHARMUSA00001-K201000927

PATIENT
  Sex: Female

DRUGS (3)
  1. FLECTOR [Suspect]
     Dosage: UNK
     Route: 061
  2. MOBIC [Concomitant]
     Dosage: UNK
  3. CIPRO [Concomitant]
     Dosage: UNK

REACTIONS (1)
  - WEIGHT INCREASED [None]
